FAERS Safety Report 9490488 (Version 4)
Quarter: 2014Q2

REPORT INFORMATION
  Report Type: Report from Study
  Country: DE (occurrence: DE)
  Receive Date: 20130830
  Receipt Date: 20140611
  Transmission Date: 20141212
  Serious: Yes (Hospitalization, Disabling, Other)
  Sender: FDA-Public Use
  Company Number: DE-SHIRE-ALL1-2013-05744

PATIENT
  Age: 37 Year
  Sex: Male
  Weight: 57 kg

DRUGS (7)
  1. IDURSULFASE [Suspect]
     Indication: MUCOPOLYSACCHARIDOSIS II
     Dosage: 30 MG, 1X/WEEK
     Route: 041
     Dates: start: 20080115
  2. LISINOPRIL [Concomitant]
     Indication: CARDIOVASCULAR DISORDER
     Dosage: 10 MG, 2X/DAY:BID
     Route: 048
     Dates: start: 20130424
  3. LISINOPRIL [Concomitant]
     Dosage: 5 MG, 1X/DAY:QD
     Route: 048
     Dates: end: 20130424
  4. HCT [Concomitant]
     Indication: CARDIOVASCULAR DISORDER
     Dosage: 25 MG, 1X/DAY:QD
     Route: 048
  5. NEBIVOLOL [Concomitant]
     Indication: CARDIOVASCULAR DISORDER
     Dosage: 2.5 MG, 1X/DAY:QD
     Route: 048
  6. CITALOPRAM [Concomitant]
     Indication: DEPRESSION
     Dosage: 40 MG, 1X/DAY:QD
     Route: 048
  7. LAMOTRIGINE [Concomitant]
     Indication: NERVOUS SYSTEM DISORDER
     Dosage: 100 MG, 2X/DAY:BID
     Route: 048

REACTIONS (4)
  - Pain [Not Recovered/Not Resolved]
  - Cardiac failure [Recovered/Resolved with Sequelae]
  - Atypical pneumonia [Recovered/Resolved with Sequelae]
  - Tachycardia [Not Recovered/Not Resolved]
